FAERS Safety Report 7234863-1 (Version None)
Quarter: 2011Q1

REPORT INFORMATION
  Report Type: 
  Country: None (occurrence: None)
  Receive Date: 20110120
  Receipt Date: 20110119
  Transmission Date: 20110831
  Serious: No
  Sender: FDA-Public Use
  Company Number: US-PFIZER INC-2010042231

PATIENT
  Sex: Female
  Weight: 68 kg

DRUGS (7)
  1. XANAX [Suspect]
     Indication: ANXIETY
     Dosage: 0.5 MG, 2X/DAY
     Route: 048
     Dates: start: 20070101, end: 20100101
  2. LAMOTRIGINE [Concomitant]
     Indication: DEPRESSION
     Dosage: 100 MG, 1X/DAY
     Dates: start: 20090101
  3. EFFEXOR XR [Suspect]
     Dosage: UNK
     Dates: start: 19870101
  4. LISINOPRIL [Concomitant]
     Indication: HYPERTENSION
     Dosage: 20 MG, 1X/DAY
     Dates: start: 20080101
  5. ULTRAM [Concomitant]
     Indication: PAIN
     Dosage: 200 MG, UNK
  6. LYRICA [Interacting]
     Indication: FIBROMYALGIA
     Dosage: 50 MG, 2X/DAY
     Route: 048
  7. EFFEXOR XR [Suspect]
     Dosage: 300 MG, UNK
     Dates: start: 20050101

REACTIONS (5)
  - FEELING ABNORMAL [None]
  - DRUG INTERACTION [None]
  - TINNITUS [None]
  - DRUG INEFFECTIVE [None]
  - HYPERSENSITIVITY [None]
